FAERS Safety Report 18339847 (Version 3)
Quarter: 2022Q3

REPORT INFORMATION
  Report Type: Report from Study
  Country: US (occurrence: US)
  Receive Date: 20201002
  Receipt Date: 20220909
  Transmission Date: 20221027
  Serious: Yes (Hospitalization, Other)
  Sender: FDA-Public Use
  Company Number: US-TAKEDA-2020TUS040950

PATIENT
  Age: 28 Year
  Sex: Female
  Weight: 88 kg

DRUGS (20)
  1. VEDOLIZUMAB [Suspect]
     Active Substance: VEDOLIZUMAB
     Indication: Colitis ulcerative
     Dosage: 300 MILLIGRAM
     Route: 042
     Dates: start: 20190215, end: 20200810
  2. IRON [Concomitant]
     Active Substance: IRON
     Indication: Anaemia
     Dosage: UNK UNK, QD
     Route: 042
     Dates: start: 20191218, end: 20191218
  3. LABETALOL [Concomitant]
     Active Substance: LABETALOL\LABETALOL HYDROCHLORIDE
     Indication: Hypertension
     Dosage: 100 MILLIGRAM, BID
     Route: 048
     Dates: start: 20200207, end: 20200810
  4. LEVOTHYROXINE SODIUM [Concomitant]
     Active Substance: LEVOTHYROXINE SODIUM
     Indication: Hypothyroidism
     Dosage: 75 MICROGRAM, QD
     Route: 048
     Dates: start: 20191205, end: 20200810
  5. LISINOPRIL [Concomitant]
     Active Substance: LISINOPRIL
     Indication: Hypertension
     Dosage: 5 MILLIGRAM, QD
     Route: 048
     Dates: start: 20191205, end: 20200206
  6. OMEPRAZOLE [Concomitant]
     Active Substance: OMEPRAZOLE
     Indication: Dyspepsia
     Dosage: 20 MILLIGRAM, QD
     Route: 048
     Dates: start: 20191205, end: 20200220
  7. PANTOPRAZOLE SODIUM [Concomitant]
     Active Substance: PANTOPRAZOLE SODIUM
     Indication: Dyspepsia
     Dosage: 40 MILLIGRAM, QD
     Route: 048
     Dates: start: 20200221, end: 20200810
  8. PROMETHAZINE [Concomitant]
     Active Substance: PROMETHAZINE HYDROCHLORIDE
     Indication: Morning sickness
     Dosage: 25 MILLIGRAM, QD
     Route: 048
     Dates: start: 20200402, end: 20200810
  9. DIPHTHERIA AND TETANUS TOXOIDS AND ACELLULAR PERTUSSIS ADSORBED AND IN [Concomitant]
     Active Substance: DIPHTHERIA AND TETANUS TOXOIDS AND ACELLULAR PERTUSSIS ADSORBED AND INACTIVATED POLIOVIRUS VACCINE
     Dosage: UNK UNK, QD
     Route: 050
     Dates: start: 20200706, end: 20200706
  10. TYLENOL                            /00020001/ [Concomitant]
     Indication: Headache
     Dosage: 500 MILLIGRAM, BID
     Route: 048
     Dates: start: 20200429, end: 20200429
  11. TYLENOL                            /00020001/ [Concomitant]
     Indication: Nasopharyngitis
     Dosage: 500 MILLIGRAM, QD
     Route: 048
     Dates: start: 20200430, end: 20200430
  12. TYLENOL                            /00020001/ [Concomitant]
     Dosage: 500 MILLIGRAM, QD
     Route: 048
     Dates: start: 20200720, end: 20200720
  13. TYLENOL                            /00020001/ [Concomitant]
     Dosage: 500 MILLIGRAM, QD
     Route: 048
     Dates: start: 20200105, end: 20200106
  14. VENLAFAXINE [Concomitant]
     Active Substance: VENLAFAXINE HYDROCHLORIDE
     Indication: Anxiety
     Dosage: 150 MILLIGRAM, QD
     Route: 048
     Dates: start: 20191205, end: 20200810
  15. VENLAFAXINE [Concomitant]
     Active Substance: VENLAFAXINE HYDROCHLORIDE
     Indication: Depression
  16. VENOFER [Concomitant]
     Active Substance: IRON SUCROSE
     Indication: Iron deficiency
     Dosage: UNK UNK, 1/WEEK
     Route: 042
     Dates: start: 20200722, end: 20200810
  17. VITAMIN B6 [Concomitant]
     Active Substance: PYRIDOXINE HYDROCHLORIDE
     Indication: General physical health deterioration
     Dosage: 100 MILLIGRAM, QD
     Route: 048
     Dates: start: 20200401, end: 20200810
  18. ZICAM                              /00070002/ [Concomitant]
     Indication: Nasopharyngitis
     Dosage: UNK UNK, BID
     Route: 048
     Dates: start: 20200105, end: 20200105
  19. IMODIUM [Concomitant]
     Active Substance: LOPERAMIDE HYDROCHLORIDE
     Indication: Colitis ulcerative
     Dosage: UNK UNK, QD
     Route: 048
     Dates: start: 20050715, end: 20200810
  20. TUMS [Concomitant]
     Active Substance: CALCIUM CARBONATE
     Indication: Dyspepsia
     Dosage: UNK UNK, QD
     Route: 048
     Dates: start: 20200208, end: 20200315

REACTIONS (2)
  - Pulmonary embolism [Unknown]
  - Pregnancy [Recovered/Resolved]

NARRATIVE: CASE EVENT DATE: 20191205
